FAERS Safety Report 8384495 (Version 4)
Quarter: 2013Q3

REPORT INFORMATION
  Report Type: Report from Study
  Country: US (occurrence: US)
  Receive Date: 20111221
  Receipt Date: 20130926
  Transmission Date: 20140515
  Serious: Yes (Hospitalization, Disabling)
  Sender: FDA-Public Use
  Company Number: PHEH2011US07336

PATIENT
  Age: 31 Year
  Sex: Female

DRUGS (3)
  1. EXJADE [Suspect]
     Indication: SICKLE CELL ANAEMIA
     Dosage: 3500 MG, DAILY
     Route: 048
     Dates: start: 20080501
  2. EXJADE [Suspect]
     Dosage: 3000 MG, DAILY
     Route: 048
     Dates: start: 20100514, end: 20111025
  3. EXJADE [Suspect]
     Dosage: 3500 MG, DAILY
     Route: 048

REACTIONS (7)
  - Sickle cell anaemia with crisis [Unknown]
  - Pain [Unknown]
  - Pain in extremity [Recovering/Resolving]
  - Device related infection [Unknown]
  - Bone pain [Recovering/Resolving]
  - Back pain [Recovering/Resolving]
  - Pyrexia [Recovering/Resolving]
